FAERS Safety Report 7318613-6 (Version None)
Quarter: 2011Q1

REPORT INFORMATION
  Report Type: 
  Country: None (occurrence: None)
  Receive Date: 20110228
  Receipt Date: 20110221
  Transmission Date: 20110831
  Serious: Yes (Death, Other)
  Sender: FDA-Public Use
  Company Number: JP-ASTELLAS-2010JP007416

PATIENT
  Sex: Female

DRUGS (12)
  1. MIYA BM [Concomitant]
     Indication: DISBACTERIOSIS
     Dosage: UNK
     Route: 048
     Dates: start: 20081114, end: 20090117
  2. CORTICOSTEROIDS [Concomitant]
     Indication: LIVER TRANSPLANT
     Route: 065
  3. VANCOMYCIN [Concomitant]
     Dosage: 0.5 G, TID
     Route: 048
     Dates: start: 20081114, end: 20090117
  4. RITUXIMAB [Concomitant]
     Dosage: 500 MG, UNKNOWN/D
     Route: 065
  5. CORTICOSTEROIDS [Concomitant]
     Indication: IMMUNOSUPPRESSANT DRUG THERAPY
     Dosage: 62.5 MG, UNKNOWN/D
     Route: 065
  6. URSO 250 [Concomitant]
     Indication: HEPATIC FUNCTION ABNORMAL
     Dosage: 2 G, TID
     Route: 048
     Dates: start: 20081114, end: 20090117
  7. MARZULENE [Concomitant]
     Indication: GASTRITIS
     Dosage: 1 G, TID
     Route: 048
     Dates: start: 20081114, end: 20090117
  8. MYCOPHENOLATE MOFETIL [Concomitant]
     Indication: IMMUNOSUPPRESSANT DRUG THERAPY
     Dosage: 2000 MG, UNKNOWN/D
     Route: 065
  9. BIOFERMIN [Concomitant]
     Indication: DISBACTERIOSIS
     Dosage: 1 G, TID
     Route: 048
     Dates: start: 20081114, end: 20090117
  10. BARACLUDE [Concomitant]
     Indication: HEPATITIS B
     Dosage: 1 DF, UID/QD
     Route: 048
     Dates: start: 20081114, end: 20090117
  11. PROGRAF [Suspect]
     Indication: IMMUNOSUPPRESSANT DRUG THERAPY
     Dosage: 0.85 MG, BID
     Route: 048
     Dates: start: 20081107, end: 20090117
  12. LAC B [Concomitant]
     Indication: DISBACTERIOSIS
     Dosage: 2 G, TID
     Route: 048
     Dates: start: 20081114, end: 20090117

REACTIONS (4)
  - DEVICE RELATED INFECTION [None]
  - ENTEROCOLITIS [None]
  - PNEUMOCYSTIS JIROVECI PNEUMONIA [None]
  - SEPSIS [None]
